FAERS Safety Report 25838150 (Version 1)
Quarter: 2025Q3

REPORT INFORMATION
  Report Type: Spontaneous
  Country: US (occurrence: US)
  Receive Date: 20250923
  Receipt Date: 20250923
  Transmission Date: 20251020
  Serious: No
  Sender: ANI
  Company Number: US-ANIPHARMA-2025-US-029591

PATIENT
  Age: 32 Year
  Sex: Female

DRUGS (18)
  1. GARLIC [Concomitant]
     Active Substance: GARLIC
  2. D 5000 [Concomitant]
  3. MENAQUINONE 6 [Concomitant]
     Active Substance: MENAQUINONE 6
  4. PROBIOTICS NOS [Concomitant]
     Active Substance: PROBIOTICS NOS
  5. IODINE TINCTURE [Concomitant]
  6. ZINC GLUCONATE [Concomitant]
     Active Substance: ZINC GLUCONATE
  7. GABAPENTIN [Concomitant]
     Active Substance: GABAPENTIN
  8. HYDROXYCHLOROQUINE SULFATE [Concomitant]
     Active Substance: HYDROXYCHLOROQUINE SULFATE
  9. SELENIUM [Concomitant]
     Active Substance: SELENIUM
  10. BACLOFEN [Concomitant]
     Active Substance: BACLOFEN
  11. CALCIUM HIGH POTENCY [Concomitant]
  12. PREDNISONE [Concomitant]
     Active Substance: PREDNISONE
  13. MAGNESIUM [Concomitant]
     Active Substance: MAGNESIUM
  14. MYCOPHENOLATE MOFETIL [Concomitant]
     Active Substance: MYCOPHENOLATE MOFETIL
  15. BACTRIM [Concomitant]
     Active Substance: SULFAMETHOXAZOLE\TRIMETHOPRIM
  16. IBUPROFEN [Concomitant]
     Active Substance: IBUPROFEN
  17. CYMBALTA [Concomitant]
     Active Substance: DULOXETINE HYDROCHLORIDE
  18. CORTICOTROPIN [Suspect]
     Active Substance: CORTICOTROPIN
     Indication: Systemic lupus erythematosus
     Route: 058

REACTIONS (2)
  - Muscle spasms [Not Recovered/Not Resolved]
  - Hair growth abnormal [Not Recovered/Not Resolved]
